FAERS Safety Report 19695667 (Version 1)
Quarter: 2021Q3

REPORT INFORMATION
  Report Type: Spontaneous
  Country: US (occurrence: US)
  Receive Date: 20210812
  Receipt Date: 20210812
  Transmission Date: 20211014
  Serious: Yes (Disabling, Other)
  Sender: FDA-Public Use
  Company Number: None

PATIENT
  Age: 78 Year
  Sex: Female
  Weight: 58.97 kg

DRUGS (5)
  1. FISH OIL [Concomitant]
     Active Substance: FISH OIL
  2. MAXZIDE [Concomitant]
     Active Substance: HYDROCHLOROTHIAZIDE\TRIAMTERENE
  3. NEUTROGENA SUNSCREEN NOS [Suspect]
     Active Substance: AVOBENZONE\HOMOSALATE\OCTISALATE\OCTOCRYLENE OR AVOBENZONE\HOMOSALATE\OCTISALATE\OCTOCRYLENE\OXYBENZONE
     Indication: PROPHYLAXIS AGAINST SOLAR RADIATION
     Dosage: ?          QUANTITY:5 DF DOSAGE FORM;?
     Route: 061
     Dates: start: 20210707
  4. LEVOTHROXIN [Concomitant]
  5. VITAMIN D3 [Concomitant]
     Active Substance: CHOLECALCIFEROL

REACTIONS (13)
  - Paraesthesia [None]
  - Application site pain [None]
  - Induration [None]
  - Vasculitis [None]
  - Scab [None]
  - Application site rash [None]
  - Application site pruritus [None]
  - Application site swelling [None]
  - Peripheral swelling [None]
  - Application site erythema [None]
  - Insomnia [None]
  - Recalled product administered [None]
  - Erythema [None]

NARRATIVE: CASE EVENT DATE: 20210707
